FAERS Safety Report 4530284-0 (Version None)
Quarter: 2004Q4

REPORT INFORMATION
  Report Type: 
  Country: None (occurrence: None)
  Receive Date: 20041217
  Receipt Date: 20030805
  Transmission Date: 20050328
  Serious: Yes (Hospitalization)
  Sender: FDA-Public Use
  Company Number: GB-MERCK-0308GBR00030

PATIENT
  Age: 69 Year
  Sex: Female

DRUGS (12)
  1. ZOCOR [Suspect]
     Route: 048
  2. RAMIPRIL [Suspect]
     Route: 048
     Dates: end: 20040101
  3. NICORANDIL [Suspect]
     Route: 048
     Dates: end: 20030101
  4. MEBEVERINE HYDROCHLORIDE [Concomitant]
     Route: 048
  5. CLOPIDOGREL BISULFATE [Concomitant]
     Route: 048
  6. DILTIAZEM HYDROCHLORIDE [Concomitant]
     Route: 048
  7. BECLOMETHASONE DIPROPIONATE [Concomitant]
     Route: 065
  8. LATANOPROST [Concomitant]
     Route: 047
  9. IRBESARTAN [Concomitant]
     Route: 065
  10. ALBUTEROL [Concomitant]
     Route: 055
  11. NITROGLYCERIN [Concomitant]
     Route: 065
  12. ACETAMINOPHEN [Concomitant]
     Route: 065

REACTIONS (6)
  - C-REACTIVE PROTEIN INCREASED [None]
  - DIZZINESS [None]
  - FEELING HOT [None]
  - OEDEMA PERIPHERAL [None]
  - PYREXIA [None]
  - RASH PRURITIC [None]
